FAERS Safety Report 21561850 (Version 2)
Quarter: 2023Q2

REPORT INFORMATION
  Report Type: Report from Study
  Country: CA (occurrence: CA)
  Receive Date: 20221107
  Receipt Date: 20230503
  Transmission Date: 20230722
  Serious: Yes (Other)
  Sender: FDA-Public Use
  Company Number: CA-HLS-202201957

PATIENT
  Sex: Male

DRUGS (1)
  1. CLOZARIL [Suspect]
     Active Substance: CLOZAPINE
     Indication: Product used for unknown indication
     Dosage: 15 MG TWICE DAILY
     Route: 048
     Dates: start: 20221012

REACTIONS (4)
  - Heart rate irregular [Unknown]
  - Heart rate increased [Not Recovered/Not Resolved]
  - Supraventricular extrasystoles [Unknown]
  - Ventricular extrasystoles [Unknown]
